FAERS Safety Report 7389065-5 (Version None)
Quarter: 2011Q2

REPORT INFORMATION
  Report Type: 
  Country: None (occurrence: None)
  Receive Date: 20110401
  Receipt Date: 20110329
  Transmission Date: 20111010
  Serious: Yes (Life-Threatening, Hospitalization)
  Sender: FDA-Public Use
  Company Number: NL-ROCHE-709328

PATIENT
  Sex: Male

DRUGS (7)
  1. CAPECITABINE [Suspect]
     Indication: COLORECTAL CANCER
     Route: 048
     Dates: start: 20100520
  2. LOPERAMIDE [Concomitant]
  3. BEVACIZUMAB [Suspect]
     Indication: COLORECTAL CANCER
     Route: 042
     Dates: start: 20100520
  4. OXALIPLATIN [Suspect]
     Indication: COLORECTAL CANCER
     Route: 042
     Dates: start: 20100520
  5. ENALAPRIL MALEATE [Concomitant]
  6. METOCLOPRAMIDE [Concomitant]
  7. NEXIUM [Concomitant]

REACTIONS (4)
  - MEGACOLON [None]
  - DIARRHOEA [None]
  - VOMITING [None]
  - COLITIS ISCHAEMIC [None]
